FAERS Safety Report 16297455 (Version 1)
Quarter: 2019Q2

REPORT INFORMATION
  Report Type: Spontaneous
  Country: US (occurrence: US)
  Receive Date: 20190509
  Receipt Date: 20190509
  Transmission Date: 20190711
  Serious: Yes (Life-Threatening)
  Sender: FDA-Public Use
  Company Number: None

PATIENT
  Age: 25 Year
  Sex: Female
  Weight: 56.25 kg

DRUGS (1)
  1. KYBELLA [Suspect]
     Active Substance: DEOXYCHOLIC ACID
     Dates: start: 20190116

REACTIONS (13)
  - Dizziness [None]
  - Wrong technique in product usage process [None]
  - Iatrogenic injury [None]
  - Cerebrovascular accident [None]
  - Vision blurred [None]
  - Pain [None]
  - Procedural complication [None]
  - Aphasia [None]
  - Chemical burn [None]
  - Nuchal rigidity [None]
  - Dyspnoea [None]
  - Venous injury [None]
  - Neck pain [None]
